FAERS Safety Report 7023941-8 (Version None)
Quarter: 2010Q4

REPORT INFORMATION
  Report Type: 
  Country: None (occurrence: None)
  Receive Date: 20101001
  Receipt Date: 20100922
  Transmission Date: 20110411
  Serious: Yes (Hospitalization)
  Sender: FDA-Public Use
  Company Number: US-JNJFOC-20100809058

PATIENT
  Sex: Female
  Weight: 46.81 kg

DRUGS (5)
  1. REMICADE [Suspect]
     Indication: INFLAMMATORY BOWEL DISEASE
     Route: 042
  2. REMICADE [Suspect]
     Route: 042
  3. 5-ASA [Concomitant]
     Route: 048
  4. METHOTREXATE [Concomitant]
  5. FOLIC ACID [Concomitant]
     Route: 048

REACTIONS (1)
  - VIRAL INFECTION [None]
